FAERS Safety Report 12974365 (Version 4)
Quarter: 2016Q4

REPORT INFORMATION
  Report Type: Spontaneous
  Country: FR (occurrence: FR)
  Receive Date: 20161125
  Receipt Date: 20161219
  Transmission Date: 20170207
  Serious: Yes (Death, Hospitalization)
  Sender: FDA-Public Use
  Company Number: FR-ROCHE-1858070

PATIENT
  Age: 65 Year
  Sex: Female

DRUGS (35)
  1. ETOPOPHOS [Suspect]
     Active Substance: ETOPOSIDE PHOSPHATE
     Indication: TRANSPLANT
     Route: 041
     Dates: start: 20161106, end: 20161106
  2. MELPHALAN [Concomitant]
     Active Substance: MELPHALAN
  3. ZOPHREN [Concomitant]
     Active Substance: ONDANSETRON
     Indication: PROPHYLAXIS OF NAUSEA AND VOMITING
     Dosage: 8MG 2/DAY
     Route: 065
  4. SOLU-MEDROL [Concomitant]
     Active Substance: METHYLPREDNISOLONE SODIUM SUCCINATE
     Route: 065
  5. PREDNISONE. [Concomitant]
     Active Substance: PREDNISONE
  6. BICNU [Suspect]
     Active Substance: CARMUSTINE
     Indication: TRANSPLANT
     Route: 041
     Dates: start: 20161105, end: 20161105
  7. CHIBRO-CADRON COLLYRE [Concomitant]
  8. POLARAMINE [Concomitant]
     Active Substance: DEXCHLORPHENIRAMINE MALEATE
     Dosage: 1 VIAL
     Route: 065
     Dates: start: 20161105
  9. ENDOXAN [Suspect]
     Active Substance: CYCLOPHOSPHAMIDE
     Indication: TRANSPLANT
     Route: 041
     Dates: start: 20161106, end: 20161108
  10. QUITAXON [Concomitant]
     Active Substance: DOXEPIN HYDROCHLORIDE
     Dosage: 1/EVENING
     Route: 065
  11. ESIDREX [Concomitant]
     Active Substance: HYDROCHLOROTHIAZIDE
     Dosage: EVERY MORNING
     Route: 065
  12. ESIDREX [Concomitant]
     Active Substance: HYDROCHLOROTHIAZIDE
     Route: 065
     Dates: start: 20161106
  13. EMEND [Concomitant]
     Active Substance: APREPITANT
     Route: 065
     Dates: start: 20161107
  14. DEXAMETHASONE. [Concomitant]
     Active Substance: DEXAMETHASONE
  15. ORACILLINE [Concomitant]
     Active Substance: PENICILLIN V
     Dosage: 1MUI (MORNING AND EVENING)
     Route: 065
  16. EPOETIN ALFA [Concomitant]
     Active Substance: ERYTHROPOIETIN
     Route: 065
  17. ZOPHREN [Concomitant]
     Active Substance: ONDANSETRON
     Route: 065
     Dates: start: 20161105
  18. EMEND [Concomitant]
     Active Substance: APREPITANT
     Route: 065
     Dates: start: 20161106
  19. SOLU-MEDROL [Concomitant]
     Active Substance: METHYLPREDNISOLONE SODIUM SUCCINATE
     Dosage: 05/NOV/2016, 06/NOV/2016, 07/NOV/2016, 08/NOV/2016 AND 09/NOV/2016
     Route: 065
  20. DOXORUBICIN [Concomitant]
     Active Substance: DOXORUBICIN
  21. MESNA. [Concomitant]
     Active Substance: MESNA
     Dosage: 06/NOV/2016, 07/NOV/2016, 08/NOV/2016
     Route: 042
     Dates: start: 20161106
  22. AXEPIM [Concomitant]
     Active Substance: CEFEPIME HYDROCHLORIDE
     Dosage: 09/NOV/2016, 10/NOV/2016, 11/NOV2016
     Route: 065
     Dates: start: 20161109
  23. MABTHERA [Suspect]
     Active Substance: RITUXIMAB
     Indication: MANTLE CELL LYMPHOMA
     Route: 041
     Dates: start: 20161105, end: 20161105
  24. ETOPOSIDE MYLAN [Suspect]
     Active Substance: ETOPOSIDE
     Indication: TRANSPLANT
     Dosage: TWICE A DAY
     Route: 041
     Dates: start: 20161107, end: 20161109
  25. EMEND [Concomitant]
     Active Substance: APREPITANT
     Indication: PROPHYLAXIS OF NAUSEA AND VOMITING
     Dosage: AT DAY 1 OF CYCLOPHOSPHAMIDE (ENDOXAN)
     Route: 065
  26. PERFALGAN [Concomitant]
     Active Substance: ACETAMINOPHEN
     Route: 065
     Dates: start: 20161105
  27. HYDROXYZINE [Concomitant]
     Active Substance: HYDROXYZINE\HYDROXYZINE HYDROCHLORIDE
     Dosage: EVERY EVENING
     Route: 065
  28. EMEND [Concomitant]
     Active Substance: APREPITANT
     Dosage: AT DAY 2, DAY 3 OF CYCLOPHOSPHAMIDE (ENDOXAN)
     Route: 065
  29. CARBOPLATIN. [Concomitant]
     Active Substance: CARBOPLATIN
  30. ACUPAN [Concomitant]
     Active Substance: NEFOPAM HYDROCHLORIDE
     Dosage: 1 VIAL
     Route: 065
     Dates: start: 20161109
  31. CYTARABINE. [Suspect]
     Active Substance: CYTARABINE
     Indication: TRANSPLANT
     Route: 041
     Dates: start: 20161106, end: 20161109
  32. VINCRISTINE [Concomitant]
     Active Substance: VINCRISTINE
  33. SODIUM CHLORIDE. [Concomitant]
     Active Substance: SODIUM CHLORIDE
     Dosage: 05/NOV/2016, 06/NOV/2016, 11/NOV/2016.
     Route: 042
  34. PRIMPERAN [Concomitant]
     Active Substance: METOCLOPRAMIDE HYDROCHLORIDE
     Dosage: ON 09/NOV/2016 (ONE VIAL).
     Route: 065
     Dates: start: 20161108
  35. AMIKLIN [Concomitant]
     Active Substance: AMIKACIN SULFATE
     Route: 065
     Dates: start: 20161109

REACTIONS (6)
  - Myocarditis [Fatal]
  - Cardiac failure acute [Fatal]
  - Product use issue [Fatal]
  - Pulmonary toxicity [Fatal]
  - Cardiotoxicity [Fatal]
  - Off label use [Fatal]

NARRATIVE: CASE EVENT DATE: 20161108
